FAERS Safety Report 8009242-X (Version None)
Quarter: 2011Q4

REPORT INFORMATION
  Report Type: 
  Country: None (occurrence: None)
  Receive Date: 20111221
  Receipt Date: 20111207
  Transmission Date: 20120403
  Serious: Yes (Hospitalization)
  Sender: FDA-Public Use
  Company Number: DSJ-2011-26204

PATIENT
  Age: 75 Year
  Sex: Female

DRUGS (5)
  1. AMLODIPINE BESYLATE AND OLMESARTAN MEDOXOMIL [Suspect]
     Indication: HYPERTENSION
     Dosage: 20/5 MG (1 IN 1 D), PER ORAL, 40/10 MG (1 IN 1 D), PER ORAL, 20/5 MG (1 IN 1 D), PER ORAL
     Route: 048
     Dates: start: 20090101, end: 20110101
  2. AMLODIPINE BESYLATE AND OLMESARTAN MEDOXOMIL [Suspect]
     Indication: HYPERTENSION
     Dosage: 20/5 MG (1 IN 1 D), PER ORAL, 40/10 MG (1 IN 1 D), PER ORAL, 20/5 MG (1 IN 1 D), PER ORAL
     Route: 048
     Dates: start: 20110101
  3. AMLODIPINE BESYLATE AND OLMESARTAN MEDOXOMIL [Suspect]
     Indication: HYPERTENSION
     Dosage: 20/5 MG (1 IN 1 D), PER ORAL, 40/10 MG (1 IN 1 D), PER ORAL, 20/5 MG (1 IN 1 D), PER ORAL
     Route: 048
     Dates: start: 20110101, end: 20110101
  4. METFORMIN HCL [Concomitant]
  5. ATENOLOL [Concomitant]

REACTIONS (4)
  - BLOOD PRESSURE INCREASED [None]
  - DRUG INEFFECTIVE [None]
  - DRUG ADMINISTRATION ERROR [None]
  - INFARCTION [None]
